FAERS Safety Report 8263292-7 (Version None)
Quarter: 2012Q1

REPORT INFORMATION
  Report Type: 
  Country: None (occurrence: None)
  Receive Date: 20120327
  Receipt Date: 20110422
  Transmission Date: 20120608
  Serious: Yes (Other)
  Sender: FDA-Public Use
  Company Number: PHHY2011US34501

PATIENT
  Age: 81 Year
  Sex: Female
  Weight: 53.5 kg

DRUGS (12)
  1. OMEPRAZOLE [Concomitant]
  2. FISH OIL (FISH OIL) [Concomitant]
  3. VITAMIN D [Concomitant]
  4. PAXIL [Concomitant]
  5. INDERAL LA [Concomitant]
  6. LOTREL [Concomitant]
  7. RITALIN [Concomitant]
  8. CIPRO [Concomitant]
  9. PROCHLORPERAZINE MALEATE [Concomitant]
  10. GLEEVEC [Suspect]
     Dosage: 1 DF/DAY, ORAL ; 1 DF/DAY, ORAL
     Route: 048
     Dates: start: 20110122
  11. AMBIEN CR [Concomitant]
  12. CARAFATE [Concomitant]

REACTIONS (4)
  - MUSCULAR WEAKNESS [None]
  - ABASIA [None]
  - DECREASED APPETITE [None]
  - URINARY TRACT INFECTION [None]
